FAERS Safety Report 7444710-0 (Version None)
Quarter: 2011Q2

REPORT INFORMATION
  Report Type: 
  Country: None (occurrence: None)
  Receive Date: 20110429
  Receipt Date: 20110417
  Transmission Date: 20111010
  Serious: No
  Sender: FDA-Public Use
  Company Number: US-B.I. PHARMACEUTICALS,INC./RIDGEFIELD-2011-BP-11054BP

PATIENT
  Sex: Male

DRUGS (3)
  1. RESCUE INHALER [Concomitant]
  2. TAMSULOSIN HCL [Concomitant]
     Indication: PROSTATOMEGALY
  3. SPIRIVA [Suspect]
     Indication: CHRONIC OBSTRUCTIVE PULMONARY DISEASE
     Dosage: 18 MCG
     Route: 055
     Dates: start: 20110301

REACTIONS (5)
  - PRURITUS [None]
  - ABDOMINAL PAIN UPPER [None]
  - GASTROENTERITIS VIRAL [None]
  - URINARY RETENTION [None]
  - DYSURIA [None]
